FAERS Safety Report 18964835 (Version 1)
Quarter: 2021Q1

REPORT INFORMATION
  Report Type: Spontaneous
  Country: TW (occurrence: TW)
  Receive Date: 20210303
  Receipt Date: 20210303
  Transmission Date: 20210420
  Serious: Yes (Hospitalization)
  Sender: FDA-Public Use
  Company Number: NVSC2021TW044733

PATIENT
  Age: 62 Year
  Sex: Male
  Weight: 72 kg

DRUGS (1)
  1. TEGRETOL XR [Suspect]
     Active Substance: CARBAMAZEPINE
     Indication: TRIGEMINAL NEURALGIA
     Dosage: 200 MG, BID (CONTROLLED RELEASE FILM?COATED TABLET))
     Route: 048

REACTIONS (15)
  - Altered state of consciousness [Unknown]
  - Inflammation [Unknown]
  - Shock [Unknown]
  - Asthenia [Unknown]
  - Parotitis [Unknown]
  - Lymphadenitis [Unknown]
  - Stomatitis necrotising [Unknown]
  - Renal impairment [Unknown]
  - Decreased appetite [Unknown]
  - Mucosal disorder [Unknown]
  - Rash [Unknown]
  - Diarrhoea [Unknown]
  - Stevens-Johnson syndrome [Unknown]
  - Infection [Unknown]
  - Pyrexia [Unknown]
